FAERS Safety Report 21346391 (Version 1)
Quarter: 2022Q3

REPORT INFORMATION
  Report Type: Spontaneous
  Country: KR (occurrence: KR)
  Receive Date: 20220917
  Receipt Date: 20220917
  Transmission Date: 20221026
  Serious: Yes (Other)
  Sender: FDA-Public Use
  Company Number: KR-JNJFOC-20220919468

PATIENT
  Age: 55 Year
  Sex: Female

DRUGS (4)
  1. SPRAVATO [Suspect]
     Active Substance: ESKETAMINE
     Indication: Depression
     Dosage: TWICE A WEEK FOR THE FIRST 4 WEEKS, LATER ONCE A WEEK, TWICE A MONTH IN LATER TIME
  2. LEXAPRO [Concomitant]
     Active Substance: ESCITALOPRAM OXALATE
  3. LOFLAZEPATE D^ETHYLE [Concomitant]
  4. LORAZEPAM [Concomitant]
     Active Substance: LORAZEPAM

REACTIONS (4)
  - Major depression [Recovered/Resolved]
  - COVID-19 [Unknown]
  - Dissociation [Unknown]
  - Headache [Unknown]
